FAERS Safety Report 5359421-5 (Version None)
Quarter: 2007Q2

REPORT INFORMATION
  Report Type: 
  Country: None (occurrence: None)
  Receive Date: 20070615
  Receipt Date: 20070605
  Transmission Date: 20071010
  Serious: Yes (Other)
  Sender: FDA-Public Use
  Company Number: US-PFIZER INC-2007040015

PATIENT
  Sex: Female

DRUGS (2)
  1. LIPITOR [Suspect]
  2. WARFARIN SODIUM [Concomitant]

REACTIONS (2)
  - LIVER FUNCTION TEST ABNORMAL [None]
  - MITRAL VALVE REPLACEMENT [None]
